FAERS Safety Report 5558673-6 (Version None)
Quarter: 2007Q4

REPORT INFORMATION
  Report Type: 
  Country: None (occurrence: None)
  Receive Date: 20071214
  Receipt Date: 20071130
  Transmission Date: 20080405
  Serious: Yes (Other)
  Sender: FDA-Public Use
  Company Number: CA-GENENTECH-252463

PATIENT
  Sex: Male
  Weight: 95.2 kg

DRUGS (1)
  1. AVASTIN [Suspect]
     Indication: GASTROINTESTINAL CARCINOMA
     Dates: start: 20070912

REACTIONS (3)
  - MOUTH ULCERATION [None]
  - ORAL MUCOSAL EXFOLIATION [None]
  - SKIN DISCOLOURATION [None]
